FAERS Safety Report 5475500-6 (Version None)
Quarter: 2007Q3

REPORT INFORMATION
  Report Type: 
  Country: None (occurrence: None)
  Receive Date: 20070914
  Receipt Date: 20060807
  Transmission Date: 20080115
  Serious: Yes (Hospitalization)
  Sender: FDA-Public Use
  Company Number: 01P-163-0185140-00

PATIENT
  Age: 47 Year
  Sex: Male
  Weight: 83.9154 kg

DRUGS (8)
  1. SYNTHROID [Suspect]
     Indication: HYPOTHYROIDISM
     Dosage: SEE IMAGE
     Route: 048
     Dates: start: 19770101, end: 19850101
  2. SYNTHROID [Suspect]
     Indication: THYROIDECTOMY
     Dosage: SEE IMAGE
     Route: 048
     Dates: start: 19770101, end: 19850101
  3. SYNTHROID [Suspect]
     Indication: HYPOTHYROIDISM
     Dosage: SEE IMAGE
     Route: 048
     Dates: start: 20041105, end: 20041201
  4. SYNTHROID [Suspect]
     Indication: THYROIDECTOMY
     Dosage: SEE IMAGE
     Route: 048
     Dates: start: 20041105, end: 20041201
  5. SYNTHROID [Suspect]
     Indication: HYPOTHYROIDISM
     Dosage: SEE IMAGE
     Route: 048
     Dates: start: 19870101
  6. SYNTHROID [Suspect]
     Indication: THYROIDECTOMY
     Dosage: SEE IMAGE
     Route: 048
     Dates: start: 19870101
  7. SYNTHROID [Suspect]
     Indication: HYPOTHYROIDISM
     Dosage: SEE IMAGE
     Route: 048
     Dates: start: 20041201
  8. SYNTHROID [Suspect]
     Indication: THYROIDECTOMY
     Dosage: SEE IMAGE
     Route: 048
     Dates: start: 20041201

REACTIONS (11)
  - ARRHYTHMIA [None]
  - CHEST PAIN [None]
  - DEPRESSION [None]
  - HEART RATE INCREASED [None]
  - HYPERHIDROSIS [None]
  - INSOMNIA [None]
  - LETHARGY [None]
  - NERVOUSNESS [None]
  - POLLAKIURIA [None]
  - SLUGGISHNESS [None]
  - TEMPERATURE INTOLERANCE [None]
